FAERS Safety Report 4334139-6 (Version None)
Quarter: 2004Q1

REPORT INFORMATION
  Report Type: 
  Country: None (occurrence: None)
  Receive Date: 20040327
  Receipt Date: 20040324
  Transmission Date: 20041129
  Serious: Yes (Other)
  Sender: FDA-Public Use
  Company Number: 23458

PATIENT
  Age: 68 Year
  Sex: Male

DRUGS (1)
  1. ALDARA [Suspect]
     Indication: BASAL CELL CARCINOMA
     Dosage: (0.1 SACHET, 2 TOTAL), TOPICAL
     Route: 061
     Dates: start: 20040320, end: 20040323

REACTIONS (2)
  - ERYTHEMA [None]
  - RASH GENERALISED [None]
